FAERS Safety Report 21728361 (Version 1)
Quarter: 2022Q4

REPORT INFORMATION
  Report Type: Spontaneous
  Country: US (occurrence: US)
  Receive Date: 20221214
  Receipt Date: 20221214
  Transmission Date: 20230113
  Serious: No
  Sender: FDA-Public Use
  Company Number: US-PFIZER INC-2018231453

PATIENT
  Age: 63 Year
  Sex: Male
  Weight: 67.13 kg

DRUGS (1)
  1. SULFASALAZINE [Suspect]
     Active Substance: SULFASALAZINE
     Indication: Inflammation
     Dosage: 2000 MG, DAILY [TWO 500 MG TABLETS IN THE MORNING AND ANOTHER 2 ABOUT 12 HOURS LATER]
     Route: 048

REACTIONS (2)
  - Therapeutic product effect incomplete [Unknown]
  - Off label use [Unknown]
